FAERS Safety Report 4443706-0 (Version None)
Quarter: 2004Q3

REPORT INFORMATION
  Report Type: 
  Country: None (occurrence: None)
  Receive Date: 20040908
  Receipt Date: 20040901
  Transmission Date: 20050211
  Serious: Yes (Other)
  Sender: FDA-Public Use
  Company Number: BR-ROCHE-379465

PATIENT
  Age: 23 Year
  Sex: Male
  Weight: 81 kg

DRUGS (1)
  1. ROACUTAN [Suspect]
     Indication: ACNE
     Route: 048
     Dates: start: 20030217, end: 20030615

REACTIONS (3)
  - ACANTHOSIS [None]
  - PITUITARY TUMOUR BENIGN [None]
  - TRANSAMINASES INCREASED [None]
